FAERS Safety Report 5710698-3 (Version None)
Quarter: 2008Q2

REPORT INFORMATION
  Report Type: 
  Country: None (occurrence: None)
  Receive Date: 20080421
  Receipt Date: 20080409
  Transmission Date: 20081010
  Serious: Yes (Other)
  Sender: FDA-Public Use
  Company Number: US-JNJFOC-20080404919

PATIENT
  Sex: Female

DRUGS (13)
  1. MOTRIN [Suspect]
     Indication: FIBROMYALGIA
  2. MOTRIN [Suspect]
     Indication: RHEUMATOID ARTHRITIS
  3. MOTRIN [Suspect]
     Indication: OSTEOARTHRITIS
  4. MOTRIN [Suspect]
     Indication: OSTEOPOROSIS
  5. CELEBREX [Suspect]
     Indication: RHEUMATOID ARTHRITIS
  6. CELEBREX [Suspect]
     Indication: OSTEOARTHRITIS
  7. CELEBREX [Suspect]
     Indication: OSTEOPOROSIS
  8. PERCOCET [Concomitant]
  9. PRILOSEC [Concomitant]
  10. NEURONTIN [Concomitant]
  11. SOMA [Concomitant]
  12. VERAPAMIL [Concomitant]
     Indication: CARDIAC DISORDER
  13. VITAMIN B-12 [Concomitant]
     Indication: ANAEMIA

REACTIONS (3)
  - GASTRODUODENAL ULCER [None]
  - GASTROINTESTINAL HAEMORRHAGE [None]
  - VITAMIN B12 DEFICIENCY [None]
